FAERS Safety Report 9272678 (Version 7)
Quarter: 2013Q4

REPORT INFORMATION
  Report Type: Report from Study
  Country: FR (occurrence: FR)
  Receive Date: 20130506
  Receipt Date: 20131104
  Transmission Date: 20140711
  Serious: Yes (Life-Threatening, Hospitalization)
  Sender: FDA-Public Use
  Company Number: FR-TEVA-401710USA

PATIENT
  Age: 81 Year
  Sex: Male
  Weight: 66 kg

DRUGS (6)
  1. BENDAMUSTINE [Suspect]
     Indication: CHRONIC LYMPHOCYTIC LEUKAEMIA
     Route: 042
     Dates: start: 20130131
  2. BENDAMUSTINE [Suspect]
     Indication: LYMPHOCYTIC LYMPHOMA
     Dosage: UNKNOWN/D
     Route: 042
     Dates: start: 20130327
  3. RITUXIMAB [Suspect]
     Indication: CHRONIC LYMPHOCYTIC LEUKAEMIA
     Route: 042
     Dates: start: 20130129
  4. RITUXIMAB [Suspect]
     Indication: LYMPHOCYTIC LYMPHOMA
     Route: 042
     Dates: start: 20130326
  5. IBRUTINIB [Suspect]
     Indication: CHRONIC LYMPHOCYTIC LEUKAEMIA
     Dosage: IBRUTINIB/PLACEBO
     Route: 048
     Dates: start: 20130131
  6. IBRUTINIB [Suspect]
     Indication: LYMPHOCYTIC LYMPHOMA
     Dosage: IBRUTINIB/PLACEBO
     Route: 048
     Dates: start: 20130411

REACTIONS (1)
  - Brain abscess [Recovered/Resolved with Sequelae]
